FAERS Safety Report 15930334 (Version 1)
Quarter: 2019Q1

REPORT INFORMATION
  Report Type: Spontaneous
  Country: US (occurrence: US)
  Receive Date: 20190115
  Receipt Date: 20190115
  Transmission Date: 20190417
  Serious: Yes (Hospitalization)
  Sender: FDA-Public Use
  Company Number: None

PATIENT
  Age: 8 Year
  Sex: Female
  Weight: 47.6 kg

DRUGS (4)
  1. METHOTREXATE. [Suspect]
     Active Substance: METHOTREXATE
     Dates: end: 20181121
  2. CYTARABINE. [Suspect]
     Active Substance: CYTARABINE
     Dates: end: 20181201
  3. VINCRISTINE SULFATE. [Suspect]
     Active Substance: VINCRISTINE SULFATE
     Dates: end: 20181121
  4. DEXAMETHASONE. [Suspect]
     Active Substance: DEXAMETHASONE
     Dates: end: 20181125

REACTIONS (12)
  - Blood culture positive [None]
  - Enterococcal infection [None]
  - Neutropenia [None]
  - Hypoxia [None]
  - Device related infection [None]
  - Pyrexia [None]
  - Streptococcal infection [None]
  - Escherichia pyelonephritis [None]
  - Drug level increased [None]
  - Chest X-ray abnormal [None]
  - Hypertension [None]
  - Hypophagia [None]

NARRATIVE: CASE EVENT DATE: 20181209
